FAERS Safety Report 16549165 (Version 1)
Quarter: 2019Q3

REPORT INFORMATION
  Report Type: Spontaneous
  Country: CN (occurrence: CN)
  Receive Date: 20190709
  Receipt Date: 20190709
  Transmission Date: 20191004
  Serious: Yes (Hospitalization)
  Sender: FDA-Public Use
  Company Number: CN-BAXTER-2019BAX013338

PATIENT
  Age: 27 Year
  Sex: Female

DRUGS (6)
  1. HOLOXAN [Suspect]
     Active Substance: IFOSFAMIDE
     Indication: SOFT TISSUE SARCOMA
  2. 0.9% SODIUM CHLORIDE INJECTION [Suspect]
     Active Substance: SODIUM CHLORIDE
     Indication: MEDICATION DILUTION
     Dosage: WITH HOLOXAN 2.70 GRAM DAY 1-4
     Route: 041
     Dates: start: 20190531, end: 20190603
  3. ETOPOSIDE. [Suspect]
     Active Substance: ETOPOSIDE
     Indication: SOFT TISSUE SARCOMA
  4. 0.9% SODIUM CHLORIDE INJECTION [Suspect]
     Active Substance: SODIUM CHLORIDE
     Dosage: WITH ETOPOSIDE INJECTION 100 MG DAY 1-4
     Route: 041
     Dates: start: 20190531, end: 20190603
  5. HOLOXAN [Suspect]
     Active Substance: IFOSFAMIDE
     Indication: MALIGNANT CONNECTIVE TISSUE NEOPLASM
     Dosage: WITH 0.9% SODIUM CHLORIDE INJECTION 500 ML DAY 1-4
     Route: 041
     Dates: start: 20190531, end: 20190603
  6. ETOPOSIDE. [Suspect]
     Active Substance: ETOPOSIDE
     Indication: MALIGNANT CONNECTIVE TISSUE NEOPLASM
     Dosage: WITH 0.9% SODIUM CHLORIDE INJECTION 500 ML DAY 1-4
     Route: 041
     Dates: start: 20190531, end: 20190603

REACTIONS (1)
  - Bone marrow failure [Recovering/Resolving]

NARRATIVE: CASE EVENT DATE: 20190604
